FAERS Safety Report 13536078 (Version 1)
Quarter: 2017Q2

REPORT INFORMATION
  Report Type: Spontaneous
  Country: BR (occurrence: BR)
  Receive Date: 20170511
  Receipt Date: 20170511
  Transmission Date: 20170830
  Serious: Yes (Other)
  Sender: FDA-Public Use
  Company Number: BR-009507513-1705BRA005010

PATIENT
  Age: 81 Year
  Sex: Female
  Weight: 44 kg

DRUGS (3)
  1. XALATAN [Concomitant]
     Active Substance: LATANOPROST
     Indication: GLAUCOMA
     Dosage: 1 DROP IN EACH EYE IN THE EVENING
     Route: 047
     Dates: start: 1993
  2. DORZOLAMIDE HYDROCHLORIDE. [Suspect]
     Active Substance: DORZOLAMIDE HYDROCHLORIDE
     Indication: GLAUCOMA
     Dosage: UNK
     Route: 047
     Dates: start: 2017, end: 2017
  3. TRUSOPT [Suspect]
     Active Substance: DORZOLAMIDE HYDROCHLORIDE
     Indication: GLAUCOMA
     Dosage: 1 DROP IN EACH EYE IN THE MORNING AND 1 DROP IN EACH EYE IN THE EVENING
     Route: 047
     Dates: start: 1993, end: 201703

REACTIONS (5)
  - Vision blurred [Recovered/Resolved]
  - Eye pain [Recovered/Resolved]
  - Product supply issue [Unknown]
  - Glaucoma [Not Recovered/Not Resolved]
  - Eye irritation [Recovered/Resolved]

NARRATIVE: CASE EVENT DATE: 2017
